FAERS Safety Report 9963977 (Version 2)
Quarter: 2014Q2

REPORT INFORMATION
  Report Type: Report from Study
  Country: US (occurrence: US)
  Receive Date: 20140305
  Receipt Date: 20140505
  Transmission Date: 20141212
  Serious: Yes (Other)
  Sender: FDA-Public Use
  Company Number: US-ABBVIE-14P-163-1206733-00

PATIENT
  Sex: Male
  Weight: 103.51 kg

DRUGS (17)
  1. HUMIRA [Suspect]
     Indication: RHEUMATOID ARTHRITIS
     Dates: end: 201201
  2. HUMIRA [Suspect]
     Dates: start: 20140214
  3. HUMIRA [Suspect]
     Indication: RHEUMATOID ARTHRITIS
  4. CELEBREX [Concomitant]
     Indication: RHEUMATOID ARTHRITIS
     Route: 048
  5. UNKNOWN MEDICATION [Concomitant]
     Indication: HYPERTENSION
  6. METHOTREXATE [Concomitant]
     Indication: RHEUMATOID ARTHRITIS
  7. UNKNOWN MEDICATION [Concomitant]
     Indication: BLOOD CHOLESTEROL INCREASED
  8. PREDNISONE [Concomitant]
     Indication: RHEUMATOID ARTHRITIS
     Dosage: DOSE PACK
     Dates: start: 2014
  9. FOLIC ACID [Concomitant]
     Indication: PRODUCT USED FOR UNKNOWN INDICATION
     Route: 048
  10. GLUCOSAMINE/CHONDROITIN [Concomitant]
     Indication: PRODUCT USED FOR UNKNOWN INDICATION
     Dosage: 400/500MG, 2 TABLETS, TWICE DAILY
  11. VITAMIN C [Concomitant]
     Indication: PRODUCT USED FOR UNKNOWN INDICATION
  12. CALCIUM + VIT D [Concomitant]
     Indication: PRODUCT USED FOR UNKNOWN INDICATION
     Dosage: 600MG + 125IU, ONCE DAILY
  13. VITAMIN D [Concomitant]
     Indication: PRODUCT USED FOR UNKNOWN INDICATION
     Route: 048
  14. LIPITOR [Concomitant]
     Indication: PRODUCT USED FOR UNKNOWN INDICATION
     Route: 048
  15. MEDROL [Concomitant]
     Indication: PRODUCT USED FOR UNKNOWN INDICATION
     Dosage: 4MG, DOSE PACK, USE AS DIRECTED
  16. AMLODIPINE [Concomitant]
     Indication: PRODUCT USED FOR UNKNOWN INDICATION
  17. LOSARTAN-HYDROCHLOROTHIAZIDE [Concomitant]
     Indication: PRODUCT USED FOR UNKNOWN INDICATION
     Dosage: 100-25 MG TABLET

REACTIONS (7)
  - Blood urine present [Recovered/Resolved]
  - Prostatic mass [Recovered/Resolved]
  - Prostate cancer [Recovered/Resolved]
  - Rheumatoid arthritis [Not Recovered/Not Resolved]
  - Inflammation [Not Recovered/Not Resolved]
  - Inflammation [Not Recovered/Not Resolved]
  - Nephrolithiasis [Not Recovered/Not Resolved]
